FAERS Safety Report 25820607 (Version 4)
Quarter: 2025Q4

REPORT INFORMATION
  Report Type: Spontaneous
  Country: JP (occurrence: JP)
  Receive Date: 20250919
  Receipt Date: 20251216
  Transmission Date: 20260119
  Serious: Yes (Death, Other)
  Sender: ASTELLAS
  Company Number: JP-ASTELLAS-2025-AER-051333

PATIENT
  Age: 78 Year
  Sex: Male

DRUGS (2)
  1. PADCEV [Suspect]
     Active Substance: ENFORTUMAB VEDOTIN-EJFV
     Indication: Ureteric cancer
     Route: 042
     Dates: start: 20250704, end: 20250710
  2. PEMBROLIZUMAB [Suspect]
     Active Substance: PEMBROLIZUMAB
     Indication: Ureteric cancer
     Route: 065
     Dates: start: 20250704, end: 20250710

REACTIONS (2)
  - Immune-mediated cholangitis [Not Recovered/Not Resolved]
  - Bacteraemia [Fatal]

NARRATIVE: CASE EVENT DATE: 20250710
